FAERS Safety Report 6345767-0 (Version None)
Quarter: 2009Q3

REPORT INFORMATION
  Report Type: 
  Country: None (occurrence: None)
  Receive Date: 20090909
  Receipt Date: 20090827
  Transmission Date: 20100115
  Serious: Yes (Hospitalization)
  Sender: FDA-Public Use
  Company Number: FR-ELI_LILLY_AND_COMPANY-FR200907000457

PATIENT
  Age: 53 Year
  Sex: Male
  Weight: 60 kg

DRUGS (10)
  1. ALIMTA [Suspect]
     Indication: NON-SMALL CELL LUNG CANCER
     Dosage: 500 MG/M2, EVERY 3 WEEKS
     Route: 042
     Dates: start: 20090625
  2. CARBOPLATIN [Concomitant]
     Indication: NON-SMALL CELL LUNG CANCER
     Dosage: 5 D/F, UNKNOWN
     Route: 042
     Dates: start: 20090625
  3. FOLIC ACID [Concomitant]
     Indication: PROPHYLAXIS
  4. VITAMIN B-12 [Concomitant]
     Indication: PROPHYLAXIS
  5. CORTICOSTEROIDS [Concomitant]
     Indication: PROPHYLAXIS
  6. CYMBALTA [Concomitant]
     Dosage: UNK, UNK
  7. METFORMIN HCL [Concomitant]
     Indication: TYPE 2 DIABETES MELLITUS
     Dosage: UNK, UNKNOWN
     Route: 065
  8. ACTOS [Concomitant]
     Indication: TYPE 2 DIABETES MELLITUS
     Dosage: UNK, UNKNOWN
     Route: 065
  9. DIAMICRON [Concomitant]
     Indication: TYPE 2 DIABETES MELLITUS
     Dosage: UNK, UNKNOWN
     Route: 065
  10. ZOPHREN [Concomitant]
     Indication: PROPHYLAXIS OF NAUSEA AND VOMITING
     Dosage: 8 MG, UNK
     Route: 042
     Dates: start: 20090625

REACTIONS (3)
  - HYPOALBUMINAEMIA [None]
  - OEDEMA PERIPHERAL [None]
  - PROTEINURIA [None]
